FAERS Safety Report 9471799 (Version 2)
Quarter: 2013Q3

REPORT INFORMATION
  Report Type: Report from Study
  Country: PE (occurrence: PE)
  Receive Date: 20130822
  Receipt Date: 20130822
  Transmission Date: 20140515
  Serious: Yes (Hospitalization)
  Sender: FDA-Public Use
  Company Number: PE-ROCHE-1260154

PATIENT
  Sex: 0

DRUGS (4)
  1. ACTEMRA [Suspect]
     Indication: PRODUCT USED FOR UNKNOWN INDICATION
     Route: 064
     Dates: start: 20100623, end: 20130610
  2. PREDNISONE [Concomitant]
     Indication: PRODUCT USED FOR UNKNOWN INDICATION
     Dosage: DAILY
     Route: 064
  3. PREGABALIN [Concomitant]
     Indication: PRODUCT USED FOR UNKNOWN INDICATION
     Dosage: 27 PILLA
     Route: 048
  4. FOLIC ACID [Concomitant]
     Route: 048
     Dates: start: 20130513

REACTIONS (5)
  - Premature baby [Unknown]
  - Maternal exposure timing unspecified [Unknown]
  - Jaundice [Unknown]
  - Aspiration [Unknown]
  - Hypoglycaemia [Unknown]
